FAERS Safety Report 5601161-9 (Version None)
Quarter: 2008Q1

REPORT INFORMATION
  Report Type: 
  Country: None (occurrence: None)
  Receive Date: 20080122
  Receipt Date: 20080122
  Transmission Date: 20080703
  Serious: Yes (Hospitalization)
  Sender: FDA-Public Use
  Company Number: None

PATIENT
  Age: 63 Year
  Sex: Male
  Weight: 68.0396 kg

DRUGS (1)
  1. GRIS-PEG [Suspect]
     Indication: ONYCHOMYCOSIS
     Dosage: 1 DAILY PO
     Route: 048
     Dates: start: 20071122, end: 20071217

REACTIONS (6)
  - CHILLS [None]
  - COUGH [None]
  - HEADACHE [None]
  - MIGRAINE [None]
  - PAIN [None]
  - PYREXIA [None]
